FAERS Safety Report 23055137 (Version 1)
Quarter: 2023Q4

REPORT INFORMATION
  Report Type: Spontaneous
  Country: FR (occurrence: None)
  Receive Date: 20231011
  Receipt Date: 20231011
  Transmission Date: 20240109
  Serious: Yes (Life-Threatening, Hospitalization, Other)
  Sender: FDA-Public Use
  Company Number: 2023A230721

PATIENT
  Sex: Female

DRUGS (5)
  1. QUETIAPINE FUMARATE [Suspect]
     Active Substance: QUETIAPINE FUMARATE
     Route: 048
  2. QUETIAPINE [Suspect]
     Active Substance: QUETIAPINE
  3. ESCITALOPRAM [Concomitant]
     Active Substance: ESCITALOPRAM OXALATE
     Dates: start: 20231005
  4. CANDESARTAN [Concomitant]
     Active Substance: CANDESARTAN
  5. QUETIAPINE LP50 [Concomitant]
     Dosage: EVERY EVENING AT 6.30 PM: FOR MORE THAN 10 YEARS

REACTIONS (3)
  - Alcoholic coma [Unknown]
  - Depression [Unknown]
  - Osteoarthritis [Unknown]
